FAERS Safety Report 11700093 (Version 1)
Quarter: 2015Q4

REPORT INFORMATION
  Report Type: Report from Study
  Country: IT (occurrence: IT)
  Receive Date: 20151105
  Receipt Date: 20151105
  Transmission Date: 20160304
  Serious: Yes (Other)
  Sender: FDA-Public Use
  Company Number: IT-ROCHE-1144130

PATIENT

DRUGS (5)
  1. OXALIPLATIN. [Suspect]
     Active Substance: OXALIPLATIN
     Indication: RECTAL CANCER
     Dosage: ON DAY 1
     Route: 042
  2. 5-FU [Suspect]
     Active Substance: FLUOROURACIL
     Indication: RECTAL CANCER
     Dosage: ON DAY 2
     Route: 040
  3. RALTITREXED [Suspect]
     Active Substance: RALTITREXED
     Indication: RECTAL CANCER
     Dosage: ON DAY 1
     Route: 042
  4. FOLINIC ACID [Suspect]
     Active Substance: LEUCOVORIN
     Indication: RECTAL CANCER
     Dosage: ON DAY 2
     Route: 042
  5. BEVACIZUMAB [Suspect]
     Active Substance: BEVACIZUMAB
     Indication: RECTAL CANCER
     Dosage: TREATMENT DAYS: -14, 1, 15 AND 29; CONCOMITANT SCHEDULE A AND -4, AND 11; SEQUENTIAL SCHEDULE B)
     Route: 042

REACTIONS (9)
  - Diarrhoea [Unknown]
  - Hepatic enzyme abnormal [Unknown]
  - Anaemia [Unknown]
  - Thrombocytopenia [Unknown]
  - Decreased appetite [Unknown]
  - Proteinuria [Unknown]
  - Neutropenia [Unknown]
  - Asthenia [Unknown]
  - Hypertension [Unknown]
